FAERS Safety Report 4489497-9 (Version None)
Quarter: 2004Q4

REPORT INFORMATION
  Report Type: 
  Country: None (occurrence: None)
  Receive Date: 20041101
  Receipt Date: 20040622
  Transmission Date: 20050328
  Serious: Yes (Hospitalization)
  Sender: FDA-Public Use
  Company Number: 200412448FR

PATIENT
  Age: 57 Year
  Sex: Female

DRUGS (5)
  1. OFLOCET [Suspect]
     Indication: URINARY TRACT INFECTION
     Route: 048
     Dates: start: 20040423, end: 20040503
  2. LOVENOX [Suspect]
     Indication: CEREBROVASCULAR DISORDER
     Route: 058
     Dates: start: 20040421
  3. DIFFU K [Suspect]
     Route: 048
     Dates: start: 20040421
  4. TAHOR [Suspect]
     Route: 048
     Dates: start: 20040421, end: 20040512
  5. KARDEGIC [Suspect]
     Route: 048
     Dates: start: 20040421

REACTIONS (2)
  - HEPATITIS CHOLESTATIC [None]
  - URINARY TRACT INFECTION [None]
